FAERS Safety Report 9792498 (Version 1)
Quarter: 2013Q4

REPORT INFORMATION
  Report Type: Spontaneous
  Country: US (occurrence: None)
  Receive Date: 20131231
  Receipt Date: 20131231
  Transmission Date: 20140711
  Serious: No
  Sender: FDA-Public Use
  Company Number: None

PATIENT
  Age: 66 Year
  Sex: Female
  Weight: 72.58 kg

DRUGS (9)
  1. PYRIDOSTIGMINE [Suspect]
  2. LIPITOR [Concomitant]
  3. TOPAMAX [Concomitant]
  4. LUNESTA [Concomitant]
  5. PREDNISONE [Concomitant]
  6. ZANTAC [Concomitant]
  7. COZAAR [Concomitant]
  8. FISH OIL [Concomitant]
  9. VIT D [Concomitant]

REACTIONS (2)
  - Abdominal discomfort [None]
  - Aphagia [None]
